FAERS Safety Report 13711132 (Version 1)
Quarter: 2017Q3

REPORT INFORMATION
  Report Type: Spontaneous
  Country: US (occurrence: US)
  Receive Date: 20170701
  Receipt Date: 20170701
  Transmission Date: 20171127
  Serious: No
  Sender: FDA-Public Use
  Company Number: None

PATIENT
  Age: 68 Year
  Sex: Female
  Weight: 101.7 kg

DRUGS (1)
  1. LOPERAMIDE HCL ANTI-DIARRHEAL [Suspect]
     Active Substance: LOPERAMIDE HYDROCHLORIDE
     Indication: DIARRHOEA
     Dosage: OTHER STRENGTH:MG;QUANTITY:2 SOFTGEL;?
     Route: 048
     Dates: start: 20170629, end: 20170701

REACTIONS (1)
  - Faeces discoloured [None]

NARRATIVE: CASE EVENT DATE: 20170701
